FAERS Safety Report 4659873-X (Version None)
Quarter: 2005Q2

REPORT INFORMATION
  Report Type: 
  Country: None (occurrence: None)
  Receive Date: 20050510
  Receipt Date: 20050504
  Transmission Date: 20051028
  Serious: Yes (Death, Congenital Anomaly, Other)
  Sender: FDA-Public Use
  Company Number: SU-2005-003287

PATIENT

DRUGS (3)
  1. BENICAR [Suspect]
     Indication: HYPERTENSION
     Dosage: 20 MG QD PO
     Route: 048
     Dates: start: 20030814, end: 20041201
  2. DYNACIRC [Concomitant]
  3. ZOCOR [Concomitant]

REACTIONS (8)
  - ABORTION SPONTANEOUS [None]
  - DRUG EXPOSURE DURING PREGNANCY [None]
  - NEONATAL DISORDER [None]
  - OLIGOHYDRAMNIOS [None]
  - POLYHYDRAMNIOS [None]
  - PREGNANCY [None]
  - RENAL FAILURE NEONATAL [None]
  - RENAL HYPERTROPHY [None]
